FAERS Safety Report 4716576-0 (Version None)
Quarter: 2005Q3

REPORT INFORMATION
  Report Type: 
  Country: None (occurrence: None)
  Receive Date: 20050718
  Receipt Date: 20050527
  Transmission Date: 20060218
  Serious: Yes (Other)
  Sender: FDA-Public Use
  Company Number: TRP_0139_2005

PATIENT
  Age: 58 Year
  Sex: Female

DRUGS (4)
  1. RIBASPHERE [Suspect]
     Indication: HEPATITIS C
     Dosage: DF PO
     Route: 048
     Dates: start: 20050502
  2. PEG-INTRON [Suspect]
     Indication: HEPATITIS C
     Dosage: DF  SC
     Route: 058
     Dates: start: 20050502
  3. EFFEXOR [Concomitant]
  4. LEVOTHYROXINE SODIUM [Concomitant]

REACTIONS (4)
  - DYSKINESIA [None]
  - FEAR [None]
  - FEELING ABNORMAL [None]
  - PARANOIA [None]
